FAERS Safety Report 13495147 (Version 1)
Quarter: 2017Q2

REPORT INFORMATION
  Report Type: Spontaneous
  Country: GB (occurrence: GB)
  Receive Date: 20170428
  Receipt Date: 20170428
  Transmission Date: 20170830
  Serious: Yes (Other)
  Sender: FDA-Public Use
  Company Number: GB-ENDO PHARMACEUTICALS INC-2017-002613

PATIENT
  Sex: Male

DRUGS (1)
  1. FORTESTA [Suspect]
     Active Substance: TESTOSTERONE
     Indication: BLOOD TESTOSTERONE DECREASED
     Dosage: UNK UNKNOWN, DAILY
     Route: 065
     Dates: start: 201604, end: 201703

REACTIONS (2)
  - Angina pectoris [Recovered/Resolved]
  - Atrial fibrillation [Recovered/Resolved]

NARRATIVE: CASE EVENT DATE: 201703
